FAERS Safety Report 14988392 (Version 2)
Quarter: 2018Q3

REPORT INFORMATION
  Report Type: Spontaneous
  Country: ZA (occurrence: ZA)
  Receive Date: 20180608
  Receipt Date: 20180801
  Transmission Date: 20181010
  Serious: Yes (Other)
  Sender: FDA-Public Use
  Company Number: ZA-PFIZER INC-2018234575

PATIENT
  Age: 68 Year
  Sex: Male

DRUGS (10)
  1. CALCIFEROL [Concomitant]
     Active Substance: ERGOCALCIFEROL
     Dosage: 50000 IU, WEEKLY
  2. PROVIGIL [Suspect]
     Active Substance: MODAFINIL
     Dosage: 200 MG, MANE
  3. WELLBUTRIN XL [Concomitant]
     Active Substance: BUPROPION HYDROCHLORIDE
     Dosage: 300 MG, UNK
  4. EXSIRA [Suspect]
     Active Substance: DESVENLAFAXINE SUCCINATE
     Dosage: 50 MG, UNK
  5. EXSIRA [Suspect]
     Active Substance: DESVENLAFAXINE SUCCINATE
     Dosage: 100 MG, UNK
  6. RIVOTRIL [Concomitant]
     Active Substance: CLONAZEPAM
     Dosage: 2 MG, 2X/DAY
  7. AMITRIPTINE [Concomitant]
     Active Substance: AMITRIPTYLINE
     Dosage: 150 MG, NOCTE
  8. DORMONOCT [Concomitant]
     Active Substance: LOPRAZOLAM
     Dosage: 2 MG, UNK
  9. EXSIRA [Suspect]
     Active Substance: DESVENLAFAXINE SUCCINATE
     Dosage: 100 MG, UNK
     Dates: start: 20170926
  10. PROVIGIL [Suspect]
     Active Substance: MODAFINIL
     Dosage: 100 MG,

REACTIONS (2)
  - Depressed mood [Unknown]
  - Atrial fibrillation [Unknown]
